FAERS Safety Report 19586929 (Version 1)
Quarter: 2021Q3

REPORT INFORMATION
  Report Type: Spontaneous
  Country: CN (occurrence: CN)
  Receive Date: 20210720
  Receipt Date: 20210720
  Transmission Date: 20211014
  Serious: Yes (Other)
  Sender: FDA-Public Use
  Company Number: CN-BAXTER-2021BAX021497

PATIENT
  Age: 50 Year
  Sex: Male

DRUGS (2)
  1. 20% MANNITOL INJECTION [Suspect]
     Active Substance: MANNITOL
     Dosage: DOSE REDUCED.
     Route: 041
     Dates: start: 20210710, end: 20210712
  2. 20% MANNITOL INJECTION [Suspect]
     Active Substance: MANNITOL
     Indication: OEDEMA
     Route: 041
     Dates: start: 20210707, end: 20210710

REACTIONS (1)
  - Acute kidney injury [Unknown]

NARRATIVE: CASE EVENT DATE: 20210710
